FAERS Safety Report 12736023 (Version 1)
Quarter: 2016Q3

REPORT INFORMATION
  Report Type: Spontaneous
  Country: US (occurrence: US)
  Receive Date: 20160912
  Receipt Date: 20160912
  Transmission Date: 20161109
  Serious: Yes (Other)
  Sender: FDA-Public Use
  Company Number: US-GLAXOSMITHKLINE-US2016129895

PATIENT
  Age: 71 Year

DRUGS (1)
  1. CITRUCEL [Suspect]
     Active Substance: METHYLCELLULOSE (4000 MPA.S)
     Indication: CONSTIPATION
     Dosage: UNK
     Dates: start: 20160830

REACTIONS (3)
  - Faeces hard [Unknown]
  - Drug ineffective [Unknown]
  - Rectal haemorrhage [Unknown]
